FAERS Safety Report 19991126 (Version 1)
Quarter: 2021Q4

REPORT INFORMATION
  Report Type: Spontaneous
  Country: US (occurrence: US)
  Receive Date: 20211025
  Receipt Date: 20211025
  Transmission Date: 20220303
  Serious: Yes (Disabling)
  Sender: FDA-Public Use
  Company Number: None

PATIENT
  Age: 56 Year
  Sex: Male
  Weight: 112.5 kg

DRUGS (1)
  1. LOTRIMIN ANTIFUNGAL (MICONAZOLE NITRATE) [Suspect]
     Active Substance: MICONAZOLE NITRATE
     Indication: Tinea cruris
     Dosage: ?          QUANTITY:1 SPRAY(S);
     Route: 061
     Dates: start: 20050102, end: 20211001

REACTIONS (3)
  - Haematocrit decreased [None]
  - Haemoglobin decreased [None]
  - Red blood cell count decreased [None]

NARRATIVE: CASE EVENT DATE: 20210822
